FAERS Safety Report 22395916 (Version 1)
Quarter: 2023Q2

REPORT INFORMATION
  Report Type: Spontaneous
  Country: US (occurrence: US)
  Receive Date: 20230601
  Receipt Date: 20230601
  Transmission Date: 20230722
  Serious: No
  Sender: FDA-Public Use
  Company Number: US-APIL-2314555US

PATIENT
  Age: 67 Year
  Sex: Female
  Weight: 83.914 kg

DRUGS (3)
  1. BOTOX [Suspect]
     Active Substance: ONABOTULINUMTOXINA
     Indication: Pollakiuria
     Dosage: UNK, SINGLE
     Dates: start: 20220712, end: 20220712
  2. NEXIUM [Concomitant]
     Active Substance: ESOMEPRAZOLE MAGNESIUM
     Indication: Gastrooesophageal reflux disease
  3. GEMTESA [Concomitant]
     Active Substance: VIBEGRON
     Indication: Pollakiuria
     Dosage: UNK
     Dates: start: 202302

REACTIONS (4)
  - Pain in extremity [Not Recovered/Not Resolved]
  - Lumbar spinal stenosis [Not Recovered/Not Resolved]
  - Condition aggravated [Unknown]
  - Drug ineffective [Unknown]

NARRATIVE: CASE EVENT DATE: 20220712
